FAERS Safety Report 4620844-0 (Version None)
Quarter: 2005Q1

REPORT INFORMATION
  Report Type: 
  Country: None (occurrence: None)
  Receive Date: 20050325
  Receipt Date: 20050317
  Transmission Date: 20050727
  Serious: Yes (Other)
  Sender: FDA-Public Use
  Company Number: 430019K05USA

PATIENT
  Age: 46 Year
  Sex: Female

DRUGS (2)
  1. NOVANTRONE [Suspect]
     Indication: MULTIPLE SCLEROSIS
     Dosage: SEE IMAGE
     Dates: start: 20010811, end: 20010811
  2. AVONEX [Concomitant]

REACTIONS (1)
  - MYOCARDIAL INFARCTION [None]
